FAERS Safety Report 8814015 (Version 2)
Quarter: 2012Q4

REPORT INFORMATION
  Report Type: 
  Country: US (occurrence: US)
  Receive Date: 20120928
  Receipt Date: 20121012
  Transmission Date: 20130627
  Serious: No
  Sender: FDA-Public Use
  Company Number: US-PFIZER INC-2012240181

PATIENT
  Age: 33 Year
  Sex: Female
  Weight: 66.67 kg

DRUGS (2)
  1. LYRICA [Suspect]
     Indication: FIBROMYALGIA
     Dosage: 150 mg, 2x/day
  2. SKELAXIN [Suspect]
     Indication: FIBROMYALGIA
     Dosage: UNK, as needed

REACTIONS (1)
  - Nasopharyngitis [Not Recovered/Not Resolved]
